FAERS Safety Report 5824299-X (Version None)
Quarter: 2008Q3

REPORT INFORMATION
  Report Type: 
  Country: None (occurrence: None)
  Receive Date: 20080728
  Receipt Date: 20080721
  Transmission Date: 20090109
  Serious: Yes (Death, Hospitalization)
  Sender: FDA-Public Use
  Company Number: NL-AVENTIS-200817016GDDC

PATIENT
  Age: 78 Year
  Sex: Female

DRUGS (9)
  1. RIFADIN [Suspect]
     Route: 048
     Dates: start: 20071013, end: 20071015
  2. PREFABALINE [Concomitant]
  3. ACETAMINOPHEN [Concomitant]
  4. PANTOPRAZOLE SODIUM [Concomitant]
  5. FRAXIPARINE [Concomitant]
  6. HYDROCHLOROTHIAZIDE [Concomitant]
  7. FLOXACILLIN SODIUM [Concomitant]
  8. ENALAPRIL MALEATE [Concomitant]
  9. DICLOFENAC SODIUM [Concomitant]

REACTIONS (2)
  - RENAL FAILURE [None]
  - RENAL TUBULAR NECROSIS [None]
